FAERS Safety Report 4470836-X (Version None)
Quarter: 2004Q4

REPORT INFORMATION
  Report Type: 
  Country: None (occurrence: None)
  Receive Date: 20041011
  Receipt Date: 20030731
  Transmission Date: 20050328
  Serious: Yes (Hospitalization, Disabling, Other)
  Sender: FDA-Public Use
  Company Number: US-BRISTOL-MYERS SQUIBB COMPANY-12342812

PATIENT
  Age: 57 Year
  Sex: Male

DRUGS (8)
  1. PRAVACHOL [Suspect]
     Indication: BLOOD CHOLESTEROL
     Dosage: 12-MAR-2003: DOSE INCREASED TO 80MG/DAILY
     Dates: start: 20010801, end: 20030101
  2. METFORMIN HCL [Concomitant]
     Indication: DIABETES MELLITUS NON-INSULIN-DEPENDENT
     Route: 048
  3. GLIPIZIDE [Concomitant]
     Indication: DIABETES MELLITUS NON-INSULIN-DEPENDENT
     Route: 048
     Dates: start: 20000214, end: 20030122
  4. ENALAPRIL MALEATE [Concomitant]
  5. GLYBURIDE [Concomitant]
     Indication: DIABETES MELLITUS NON-INSULIN-DEPENDENT
     Dosage: 12-MAR-2003: INCREASED DOSE TO 15MG/DAY
     Route: 048
     Dates: start: 20030122
  6. HYZAAR [Concomitant]
     Indication: HYPERTENSION
     Dosage: DOSAGE FORM = 1 TABLET = 100/25
     Route: 048
     Dates: start: 20030122
  7. VERAPAMIL [Concomitant]
     Indication: HYPERTENSION
     Dosage: 12-MAR-2003: INCREASED TO 120MG BID
     Route: 048
     Dates: start: 20030122
  8. LASIX [Concomitant]
     Indication: OEDEMA
     Route: 048
     Dates: start: 20030312

REACTIONS (23)
  - ASTHENIA [None]
  - BALANCE DISORDER [None]
  - CARDIOMEGALY [None]
  - CELLULITIS [None]
  - CEREBELLAR ATROPHY [None]
  - CEREBRAL ATROPHY [None]
  - CONVULSION [None]
  - DIARRHOEA [None]
  - DILATATION ATRIAL [None]
  - FATIGUE [None]
  - JOINT RANGE OF MOTION DECREASED [None]
  - LOSS OF CONSCIOUSNESS [None]
  - MEMORY IMPAIRMENT [None]
  - MENTAL IMPAIRMENT [None]
  - MUSCLE ATROPHY [None]
  - OSTEOMYELITIS [None]
  - PNEUMONIA [None]
  - POOR PERIPHERAL CIRCULATION [None]
  - RENAL FAILURE ACUTE [None]
  - RHABDOMYOLYSIS [None]
  - SINUS TACHYCARDIA [None]
  - THROMBOSIS [None]
  - VOMITING [None]
